FAERS Safety Report 24561070 (Version 1)
Quarter: 2024Q4

REPORT INFORMATION
  Report Type: Spontaneous
  Country: US (occurrence: None)
  Receive Date: 20241025
  Receipt Date: 20241025
  Transmission Date: 20250115
  Serious: No
  Sender: Public
  Company Number: None

PATIENT
  Age: 72 Year
  Sex: Female
  Weight: 60.3 kg

DRUGS (2)
  1. ZICAM COLD REMEDY [Suspect]
     Active Substance: HOMEOPATHICS\ZINC ACETATE\ZINC GLUCONATE
     Indication: Cough
     Dosage: OTHER QUANTITY : 1 TABLET(S)?OTHER FREQUENCY : 2-3H, NOT}7 PER24H?
     Route: 048
     Dates: start: 20241015, end: 20241024
  2. Synthroid Hormone Replacement Therapy [Concomitant]

REACTIONS (4)
  - Ageusia [None]
  - Anosmia [None]
  - Drug ineffective [None]
  - Suspected product quality issue [None]

NARRATIVE: CASE EVENT DATE: 20241018
